FAERS Safety Report 6338702-2 (Version None)
Quarter: 2009Q3

REPORT INFORMATION
  Report Type: 
  Country: None (occurrence: None)
  Receive Date: 20090903
  Receipt Date: 20070913
  Transmission Date: 20100115
  Serious: Yes (Hospitalization, Other)
  Sender: FDA-Public Use
  Company Number: US-ASTRAZENECA-2006UW27638

PATIENT
  Age: 472 Month
  Sex: Female
  Weight: 109.8 kg

DRUGS (32)
  1. SEROQUEL [Suspect]
     Indication: DEPRESSION
     Dosage: 150 MG, 200 MG, 3 TIMES PER DAY
     Route: 048
     Dates: start: 19990101, end: 20070301
  2. SEROQUEL [Suspect]
     Dosage: 200 MG-600 MG
     Route: 048
     Dates: start: 20030616
  3. ABILIFY [Concomitant]
     Route: 048
     Dates: start: 20060301
  4. GEODON [Concomitant]
     Dosage: 60 MG - 80 MG
     Dates: start: 20010531, end: 20050301
  5. THORAZINE [Concomitant]
     Route: 048
     Dates: start: 19991201, end: 20020601
  6. ZOLOFT [Concomitant]
     Route: 048
     Dates: start: 19990723, end: 19991221
  7. LEXAPRO [Concomitant]
     Route: 048
     Dates: start: 20050204, end: 20060101
  8. WELLBUTRIN SR [Concomitant]
     Route: 048
     Dates: start: 19990723
  9. RESTORIL [Concomitant]
     Route: 048
     Dates: start: 20000502
  10. MELLARIL [Concomitant]
     Route: 048
     Dates: start: 20001003
  11. AMBIEN [Concomitant]
     Route: 048
     Dates: start: 20011016
  12. CYMBALTA [Concomitant]
     Dates: start: 20041129
  13. AVANDIA [Concomitant]
     Dates: start: 20050807
  14. GLUCOVANCE [Concomitant]
     Dates: start: 20001009
  15. FERROUS SULFATE TAB [Concomitant]
     Dates: start: 20050807
  16. RISPERDAL [Concomitant]
     Dosage: 2 MG-6 MG
     Dates: start: 19980317
  17. RISPERDAL [Concomitant]
     Dosage: 2 MG - 4 MG
     Dates: start: 20050301
  18. GLYBURIDE [Concomitant]
     Dosage: 2.5 MG-20 MG
     Dates: start: 20001013
  19. METFORMIN HCL [Concomitant]
     Dosage: 500 MG-2000 MG
     Route: 048
     Dates: start: 20001013
  20. REMERON [Concomitant]
     Route: 048
     Dates: start: 19990901
  21. REMERON [Concomitant]
     Dosage: 15 MG-30 MG
     Dates: start: 20001013
  22. ZYPREXA [Concomitant]
     Dates: start: 19990723
  23. ZYPREXA [Concomitant]
     Dates: start: 20001013
  24. LYRICA [Concomitant]
     Indication: DIABETIC NEUROPATHY
     Dates: start: 20070816
  25. LIPITOR [Concomitant]
     Dosage: 10 MG-20 MG
     Dates: start: 20030616
  26. DEPAKOTE [Concomitant]
     Dosage: 250 MG-1500 MG
     Dates: start: 19980318
  27. DEPAKOTE [Concomitant]
     Route: 048
     Dates: start: 19990903
  28. TRAZODONE [Concomitant]
     Route: 048
     Dates: start: 19990723
  29. TRAZODONE [Concomitant]
     Dates: start: 20030824
  30. LORAZEPAM [Concomitant]
     Dates: start: 20030824
  31. WELLBUTRIN [Concomitant]
     Dosage: 150 MG-300 MG
     Dates: start: 20001013
  32. TEMAZEPAM [Concomitant]
     Dates: start: 20030824

REACTIONS (14)
  - AMYOTROPHY [None]
  - ARTHROPATHY [None]
  - BLOOD CHOLESTEROL INCREASED [None]
  - DIABETES MELLITUS INADEQUATE CONTROL [None]
  - DIABETIC NEUROPATHY [None]
  - MAJOR DEPRESSION [None]
  - MENORRHAGIA [None]
  - NEUROPATHY PERIPHERAL [None]
  - OBESITY [None]
  - PAIN IN EXTREMITY [None]
  - POLYNEUROPATHY [None]
  - TYPE 2 DIABETES MELLITUS [None]
  - UTERINE LEIOMYOMA [None]
  - WEIGHT INCREASED [None]
